FAERS Safety Report 16110450 (Version 2)
Quarter: 2019Q3

REPORT INFORMATION
  Report Type: Spontaneous
  Country: US (occurrence: US)
  Receive Date: 20190325
  Receipt Date: 20190730
  Transmission Date: 20191004
  Serious: Yes (Other)
  Sender: FDA-Public Use
  Company Number: US-ASTRAZENECA-2019SE41814

PATIENT
  Age: 25502 Day
  Sex: Female
  Weight: 81.2 kg

DRUGS (27)
  1. SPIRONOLACTONE. [Concomitant]
     Active Substance: SPIRONOLACTONE
     Indication: HYPERTENSION
     Dates: start: 1996
  2. HYDROCODONE [Concomitant]
     Active Substance: HYDROCODONE
     Indication: PAIN
     Dates: start: 2012
  3. GLYBURIDE. [Concomitant]
     Active Substance: GLYBURIDE
     Dates: start: 2013, end: 2015
  4. PROAIR HFA [Concomitant]
     Active Substance: ALBUTEROL SULFATE
     Dates: start: 2009
  5. VALSARTAN. [Concomitant]
     Active Substance: VALSARTAN
     Dates: start: 2016, end: 2017
  6. NEXIUM [Suspect]
     Active Substance: ESOMEPRAZOLE MAGNESIUM
     Indication: GASTROOESOPHAGEAL REFLUX DISEASE
     Route: 048
     Dates: start: 20170203
  7. FEXOFENADINE [Concomitant]
     Active Substance: FEXOFENADINE HYDROCHLORIDE
     Dates: start: 2009
  8. LOSARTAN. [Concomitant]
     Active Substance: LOSARTAN
     Dates: start: 2017
  9. NIFEDIPINE. [Concomitant]
     Active Substance: NIFEDIPINE
     Dates: start: 2014
  10. BISOPROLOL [Concomitant]
     Active Substance: BISOPROLOL
     Dates: start: 2013
  11. LISINOPRIL. [Concomitant]
     Active Substance: LISINOPRIL
     Dates: start: 2008, end: 2015
  12. METOPROLOL. [Concomitant]
     Active Substance: METOPROLOL
     Dates: start: 2008, end: 2009
  13. CLONIDINE. [Concomitant]
     Active Substance: CLONIDINE
     Dates: start: 2013, end: 2015
  14. HYDROCODONE BITARTRATE AND ACETAMINOPHEN [Concomitant]
     Active Substance: ACETAMINOPHEN\HYDROCODONE BITARTRATE
     Dates: start: 2009
  15. FLUTICASONE. [Concomitant]
     Active Substance: FLUTICASONE
     Dates: start: 2009
  16. RANITIDINE. [Concomitant]
     Active Substance: RANITIDINE
     Dates: start: 2016
  17. TYLENOL [Concomitant]
     Active Substance: ACETAMINOPHEN
  18. NEXIUM [Suspect]
     Active Substance: ESOMEPRAZOLE MAGNESIUM
     Indication: GASTROOESOPHAGEAL REFLUX DISEASE
     Route: 048
     Dates: start: 20070803, end: 20151111
  19. OMEPRAZOLE. [Suspect]
     Active Substance: OMEPRAZOLE
     Indication: GASTROOESOPHAGEAL REFLUX DISEASE
     Route: 065
     Dates: start: 20170403, end: 20170927
  20. METFORMIN [Concomitant]
     Active Substance: METFORMIN HYDROCHLORIDE
     Indication: DIABETES MELLITUS
     Dates: start: 2008
  21. SUCRALFATE. [Concomitant]
     Active Substance: SUCRALFATE
     Indication: ASTHMA
     Dates: start: 2009
  22. OMEPRAZOLE. [Suspect]
     Active Substance: OMEPRAZOLE
     Indication: GASTROOESOPHAGEAL REFLUX DISEASE
     Route: 065
     Dates: start: 20170927
  23. LIPITOR [Concomitant]
     Active Substance: ATORVASTATIN CALCIUM
     Indication: BLOOD CHOLESTEROL INCREASED
     Dates: start: 1998, end: 2011
  24. AMLODIPINE [Concomitant]
     Active Substance: AMLODIPINE BESYLATE
     Indication: HYPERSENSITIVITY
     Dates: start: 2012
  25. MELOXICAM. [Concomitant]
     Active Substance: MELOXICAM
     Indication: OSTEOARTHRITIS
     Dates: start: 2012, end: 2013
  26. VERAPAMIL [Concomitant]
     Active Substance: VERAPAMIL HYDROCHLORIDE
     Dates: start: 2017
  27. AMOXICILLIN. [Concomitant]
     Active Substance: AMOXICILLIN

REACTIONS (3)
  - Chronic kidney disease [Not Recovered/Not Resolved]
  - Acute kidney injury [Unknown]
  - Renal failure [Not Recovered/Not Resolved]

NARRATIVE: CASE EVENT DATE: 20110731
